FAERS Safety Report 5199652-0 (Version None)
Quarter: 2007Q1

REPORT INFORMATION
  Report Type: 
  Country: None (occurrence: None)
  Receive Date: 20070103
  Receipt Date: 20070103
  Transmission Date: 20070707
  Serious: Yes (Other)
  Sender: FDA-Public Use
  Company Number: None

PATIENT
  Age: 79 Year
  Sex: Female

DRUGS (1)
  1. XELODA [Suspect]
     Indication: BREAST CANCER
     Dosage: 2 TABS  BID  PO
     Route: 048
     Dates: start: 20061115, end: 20061221

REACTIONS (3)
  - BURNING SENSATION [None]
  - FLUSHING [None]
  - STOMACH DISCOMFORT [None]
